FAERS Safety Report 6154552-4 (Version None)
Quarter: 2009Q2

REPORT INFORMATION
  Report Type: 
  Country: None (occurrence: None)
  Receive Date: 20090414
  Receipt Date: 20090414
  Transmission Date: 20091009
  Serious: Yes (Death)
  Sender: FDA-Public Use
  Company Number: US-ROXANE LABORATORIES, INC.-2009-RO-00376RO

PATIENT
  Sex: Male

DRUGS (9)
  1. FUROSEMIDE [Suspect]
  2. DIGOXIN [Suspect]
  3. ALBUTEROL [Suspect]
  4. AZITHROMYCIN [Suspect]
  5. CYANOBALAMINE [Suspect]
  6. EPOETIN [Suspect]
  7. SIMVASTATIN [Suspect]
  8. WARFARIN SODIUM [Suspect]
  9. POTASSIUM CHLORIDE [Suspect]

REACTIONS (1)
  - SEPSIS [None]
